FAERS Safety Report 14594027 (Version 1)
Quarter: 2018Q1

REPORT INFORMATION
  Report Type: Spontaneous
  Country: US (occurrence: US)
  Receive Date: 20180302
  Receipt Date: 20180302
  Transmission Date: 20180509
  Serious: No
  Sender: FDA-Public Use
  Company Number: US-AMGEN-USASP2017103308

PATIENT
  Age: 59 Year
  Sex: Female

DRUGS (11)
  1. SENSIPAR [Suspect]
     Active Substance: CINACALCET HYDROCHLORIDE
     Indication: CHRONIC KIDNEY DISEASE
     Dosage: 30 MG, EVERY TUESDAY AND THURSDAY
     Route: 048
     Dates: start: 200804, end: 201505
  2. SENSIPAR [Suspect]
     Active Substance: CINACALCET HYDROCHLORIDE
     Indication: BLOOD CALCIUM ABNORMAL
  3. ZEMPLAR [Concomitant]
     Active Substance: PARICALCITOL
     Dosage: 2 MUG, ON EVERY MONDAY WEDNESDAY AND FRIDAY
  4. LISINOPRIL. [Concomitant]
     Active Substance: LISINOPRIL
     Indication: HYPERTENSION
     Dosage: 5 MG, QD
  5. THYROXIN [Concomitant]
     Active Substance: LEVOTHYROXINE
     Dosage: 112.5 MUG, QD
  6. SENSIPAR [Suspect]
     Active Substance: CINACALCET HYDROCHLORIDE
     Indication: HYPERPARATHYROIDISM
  7. ARANESP [Concomitant]
     Active Substance: DARBEPOETIN ALFA
     Indication: ANAEMIA
     Dosage: 50 MUG, EVERY 16 WEEKS
     Dates: end: 201110
  8. ZEMPLAR [Concomitant]
     Active Substance: PARICALCITOL
     Dosage: 1 MUG, ON TUESDAY THURSDAY SATURDAY AND SUNDAY
  9. SENSIPAR [Suspect]
     Active Substance: CINACALCET HYDROCHLORIDE
     Indication: BLOOD PHOSPHORUS ABNORMAL
  10. ALLOPURINOL. [Concomitant]
     Active Substance: ALLOPURINOL
     Dosage: 150 MG, QD
  11. IRON [Concomitant]
     Active Substance: IRON
     Dosage: 25 MG, 5 TIMES A WEEK

REACTIONS (3)
  - Therapeutic response unexpected [Unknown]
  - Off label use [Unknown]
  - Blood creatinine increased [Not Recovered/Not Resolved]

NARRATIVE: CASE EVENT DATE: 200804
